FAERS Safety Report 11821187 (Version 2)
Quarter: 2016Q1

REPORT INFORMATION
  Report Type: Spontaneous
  Country: US (occurrence: US)
  Receive Date: 20151210
  Receipt Date: 20160202
  Transmission Date: 20160525
  Serious: No
  Sender: FDA-Public Use
  Company Number: US-JNJFOC-20150801449

PATIENT
  Age: 74 Year
  Sex: Female
  Weight: 51 kg

DRUGS (17)
  1. IMBRUVICA [Suspect]
     Active Substance: IBRUTINIB
     Indication: CHRONIC LYMPHOCYTIC LEUKAEMIA
     Route: 048
     Dates: start: 201511, end: 20151216
  2. NORVASC [Concomitant]
     Active Substance: AMLODIPINE BESYLATE
  3. PREDNISONE. [Concomitant]
     Active Substance: PREDNISONE
  4. LOPRESSOR [Concomitant]
     Active Substance: METOPROLOL TARTRATE
  5. ATIVAN [Concomitant]
     Active Substance: LORAZEPAM
  6. IMBRUVICA [Suspect]
     Active Substance: IBRUTINIB
     Indication: CHRONIC LYMPHOCYTIC LEUKAEMIA
     Route: 048
     Dates: start: 20150729, end: 2015
  7. PRILOSEC [Concomitant]
     Active Substance: OMEPRAZOLE MAGNESIUM
  8. PERCOCET [Concomitant]
     Active Substance: ACETAMINOPHEN\OXYCODONE HYDROCHLORIDE
  9. IMMUNOGLOBULIN [Concomitant]
     Active Substance: HUMAN IMMUNOGLOBULIN G
  10. TYLENOL [Concomitant]
     Active Substance: ACETAMINOPHEN
  11. ALLOPURINOL. [Concomitant]
     Active Substance: ALLOPURINOL
  12. PEPTO-BISMOL [Concomitant]
     Active Substance: BISMUTH SUBSALICYLATE\CALCIUM CARBONATE
  13. FISH OIL [Concomitant]
     Active Substance: FISH OIL
  14. IMBRUVICA [Suspect]
     Active Substance: IBRUTINIB
     Indication: CHRONIC LYMPHOCYTIC LEUKAEMIA
     Route: 048
     Dates: start: 20150602, end: 20150722
  15. OXYGEN. [Concomitant]
     Active Substance: OXYGEN
  16. PROBIOTIC [Concomitant]
     Active Substance: PROBIOTICS NOS
  17. FLUORINE [Concomitant]
     Active Substance: FLUORINE

REACTIONS (10)
  - Diarrhoea [Unknown]
  - Contusion [Unknown]
  - Dyspepsia [Recovering/Resolving]
  - Malaise [Unknown]
  - Gastrooesophageal reflux disease [Unknown]
  - Vision blurred [Recovering/Resolving]
  - Muscle spasms [Unknown]
  - Weight decreased [Unknown]
  - Pain [Unknown]
  - White blood cell count increased [Recovering/Resolving]

NARRATIVE: CASE EVENT DATE: 2015
